FAERS Safety Report 7256082-5 (Version None)
Quarter: 2011Q1

REPORT INFORMATION
  Report Type: 
  Country: None (occurrence: None)
  Receive Date: 20110129
  Receipt Date: 20100601
  Transmission Date: 20110831
  Serious: No
  Sender: FDA-Public Use
  Company Number: US-ABBOTT-10P-163-0648631-00

PATIENT
  Age: 56 Year
  Sex: Male

DRUGS (11)
  1. ASPIRIN [Concomitant]
     Indication: PRODUCT USED FOR UNKNOWN INDICATION
  2. CORTIFOAM [Concomitant]
     Indication: PRODUCT USED FOR UNKNOWN INDICATION
     Dosage: HAVE NOT USED IN A COUPLE OF MONTHS
  3. HYDROCHLOROTHIAZIDE [Concomitant]
     Indication: OSTEOPOROSIS
  4. ONE A DAY MULTIVITAMIN [Concomitant]
     Indication: PRODUCT USED FOR UNKNOWN INDICATION
  5. COLAZAL [Concomitant]
     Indication: COLITIS
  6. MESALAMINE [Concomitant]
     Indication: PRODUCT USED FOR UNKNOWN INDICATION
     Dosage: HAVE NOT USED IN A COUPLE OF MONTHS
  7. HUMIRA [Suspect]
     Indication: COLITIS ULCERATIVE
     Dates: start: 20090201
  8. FOLIC ACID [Concomitant]
     Indication: PRODUCT USED FOR UNKNOWN INDICATION
  9. CALCIUM CITRATE PLUS D [Concomitant]
     Indication: PRODUCT USED FOR UNKNOWN INDICATION
  10. VITAMIN D PLUS CLACIUM [Concomitant]
     Indication: PRODUCT USED FOR UNKNOWN INDICATION
  11. ACTONEL [Concomitant]
     Indication: PRODUCT USED FOR UNKNOWN INDICATION
     Dosage: STOPPED ONE MONTH AGO

REACTIONS (1)
  - SKIN PAPILLOMA [None]
